FAERS Safety Report 18578622 (Version 1)
Quarter: 2020Q4

REPORT INFORMATION
  Report Type: Spontaneous
  Country: US (occurrence: US)
  Receive Date: 20201204
  Receipt Date: 20201204
  Transmission Date: 20210114
  Serious: Yes (Other)
  Sender: FDA-Public Use
  Company Number: US-009507513-2011USA015973

PATIENT
  Age: 71 Year
  Sex: Female

DRUGS (9)
  1. PRINIVIL [Suspect]
     Active Substance: LISINOPRIL
     Route: 048
  2. LYRICA [Concomitant]
     Active Substance: PREGABALIN
  3. LEVAQUIN [Suspect]
     Active Substance: LEVOFLOXACIN
  4. PENICILLIN (UNSPECIFIED) [Suspect]
     Active Substance: PENICILLIN
  5. ASPIRIN. [Suspect]
     Active Substance: ASPIRIN
  6. METFORMIN [Concomitant]
     Active Substance: METFORMIN HYDROCHLORIDE
  7. KLOR-CON [Concomitant]
     Active Substance: POTASSIUM CHLORIDE
  8. DIOVAN HCT [Suspect]
     Active Substance: HYDROCHLOROTHIAZIDE\VALSARTAN
     Indication: BLOOD PRESSURE ABNORMAL
     Dosage: 1 DF (VALSARTAN 160 MG, HYDROCHLOROTHIAZIDE 25 (UNITS NOT PROVIDED), QD
     Route: 048
  9. AMLODIPINE [Suspect]
     Active Substance: AMLODIPINE BESYLATE
     Indication: BLOOD PRESSURE ABNORMAL

REACTIONS (6)
  - Nerve compression [Unknown]
  - Urticaria [Unknown]
  - Sinusitis [Unknown]
  - Dysphonia [Unknown]
  - Pharyngeal swelling [Unknown]
  - Drug hypersensitivity [Unknown]
